FAERS Safety Report 4273734-X (Version None)
Quarter: 2004Q1

REPORT INFORMATION
  Report Type: 
  Country: None (occurrence: None)
  Receive Date: 20040119
  Receipt Date: 20040109
  Transmission Date: 20041129
  Serious: Yes (Other)
  Sender: FDA-Public Use
  Company Number: PHBS2004IT00710

PATIENT
  Sex: Male

DRUGS (3)
  1. NEORAL [Suspect]
     Indication: VASCULITIS
     Dosage: 100 MG, BID
     Route: 065
     Dates: start: 20030301
  2. CORTISONE [Concomitant]
  3. ANTIHISTAMINICS [Concomitant]

REACTIONS (2)
  - CONDITION AGGRAVATED [None]
  - GAMMOPATHY [None]
